FAERS Safety Report 25113482 (Version 1)
Quarter: 2025Q1

REPORT INFORMATION
  Report Type: Spontaneous
  Country: PR (occurrence: PR)
  Receive Date: 20250324
  Receipt Date: 20250324
  Transmission Date: 20250409
  Serious: Yes (Other)
  Sender: ALCON
  Company Number: PR-ALCON LABORATORIES-ALC2025PR001592

PATIENT
  Sex: Male

DRUGS (1)
  1. SYSTANE ULTRA [Suspect]
     Active Substance: POLYETHYLENE GLYCOL 400\PROPYLENE GLYCOL
     Indication: Product used for unknown indication
     Route: 047

REACTIONS (5)
  - Blindness transient [Recovering/Resolving]
  - Retinal oedema [Recovering/Resolving]
  - Maculopathy [Recovering/Resolving]
  - Eye infection [Recovering/Resolving]
  - Asthenopia [Recovering/Resolving]

NARRATIVE: CASE EVENT DATE: 20241201
